FAERS Safety Report 17265004 (Version 1)
Quarter: 2020Q1

REPORT INFORMATION
  Report Type: Spontaneous
  Country: US (occurrence: US)
  Receive Date: 20200113
  Receipt Date: 20200113
  Transmission Date: 20200409
  Serious: No
  Sender: FDA-Public Use
  Company Number: US-009507513-1912USA008075

PATIENT
  Age: 15 Year
  Sex: Female

DRUGS (3)
  1. ALBUTEROL. [Concomitant]
     Active Substance: ALBUTEROL
  2. EPIPEN [Concomitant]
     Active Substance: EPINEPHRINE
  3. ASMANEX [Suspect]
     Active Substance: MOMETASONE FUROATE
     Indication: PNEUMONITIS
     Dosage: UNK, TWICE A DAY FOR TWO WEEKS
     Dates: start: 20191214

REACTIONS (5)
  - Respiration abnormal [Not Recovered/Not Resolved]
  - Product dose omission [Unknown]
  - Product prescribing issue [Unknown]
  - Poor quality device used [Unknown]
  - Product quality issue [Unknown]

NARRATIVE: CASE EVENT DATE: 201912
